FAERS Safety Report 7709929-X (Version None)
Quarter: 2011Q3

REPORT INFORMATION
  Report Type: 
  Country: None (occurrence: None)
  Receive Date: 20110825
  Receipt Date: 20110815
  Transmission Date: 20111222
  Serious: No
  Sender: FDA-Public Use
  Company Number: US-B.I. PHARMACEUTICALS,INC./RIDGEFIELD-2011-BP-20056BP

PATIENT
  Sex: Female

DRUGS (2)
  1. METFORMIN HCL [Concomitant]
  2. TRADJENTA [Suspect]

REACTIONS (3)
  - BLOOD GLUCOSE INCREASED [None]
  - PARAESTHESIA [None]
  - NAUSEA [None]
